FAERS Safety Report 9527791 (Version 2)
Quarter: 2013Q3

REPORT INFORMATION
  Report Type: Spontaneous
  Country: DE (occurrence: DE)
  Receive Date: 20130917
  Receipt Date: 20130923
  Transmission Date: 20140515
  Serious: Yes (Hospitalization, Other)
  Sender: FDA-Public Use
  Company Number: DE-RANBAXY-2013RR-72950

PATIENT
  Age: 1 Day
  Sex: Female

DRUGS (4)
  1. SERTRALINE [Suspect]
     Indication: DEPRESSION
     Dosage: 50 MG, QD, 15-33.2 GESTATIONAL WEEKS
     Route: 064
  2. PAROXAT [Concomitant]
     Indication: DEPRESSION
     Dosage: 40 MG, QD, 0-14.6 GESTATIONAL WEEKS
     Route: 064
  3. BETAMETHASON [Concomitant]
     Indication: MATERNAL THERAPY TO ENHANCE FOETAL LUNG MATURITY
     Dosage: IN THE THIRD TRIMESTER, TWICE
     Route: 064
  4. INSULIN [Concomitant]
     Indication: GESTATIONAL DIABETES
     Dosage: SINCE 24TH WEEK OF PREGNANCY
     Route: 058

REACTIONS (3)
  - Premature baby [Recovered/Resolved]
  - Bradycardia neonatal [Recovered/Resolved]
  - Neonatal respiratory distress syndrome [Recovered/Resolved]
